FAERS Safety Report 4949900-4 (Version None)
Quarter: 2006Q1

REPORT INFORMATION
  Report Type: 
  Country: None (occurrence: None)
  Receive Date: 20060314
  Receipt Date: 20060306
  Transmission Date: 20060701
  Serious: Yes (Hospitalization)
  Sender: FDA-Public Use
  Company Number: 200610920GDS

PATIENT
  Age: 76 Year
  Sex: Male
  Weight: 80 kg

DRUGS (5)
  1. SORAFENIB [Suspect]
     Indication: RENAL CELL CARCINOMA STAGE UNSPECIFIED
     Dosage: 400 MG, BID, ORAL
     Route: 048
     Dates: end: 20060207
  2. MILURIT [Concomitant]
  3. FUROSEMIDE [Concomitant]
  4. THEOSPIREX [Concomitant]
  5. AMLOZEK [Concomitant]

REACTIONS (3)
  - CONDITION AGGRAVATED [None]
  - PROTEINURIA [None]
  - RENAL FAILURE [None]
